FAERS Safety Report 5047908-4 (Version None)
Quarter: 2006Q3

REPORT INFORMATION
  Report Type: 
  Country: None (occurrence: None)
  Receive Date: 20060711
  Receipt Date: 20060505
  Transmission Date: 20061208
  Serious: Yes (Hospitalization)
  Sender: FDA-Public Use
  Company Number: BE-GLAXOSMITHKLINE-B0423280A

PATIENT
  Sex: Female
  Weight: 60 kg

DRUGS (1)
  1. SEROXAT [Suspect]
     Indication: MAJOR DEPRESSION
     Route: 048
     Dates: start: 20060101

REACTIONS (1)
  - NORMAL DELIVERY [None]
